FAERS Safety Report 6568905-3 (Version None)
Quarter: 2010Q1

REPORT INFORMATION
  Report Type: 
  Country: None (occurrence: None)
  Receive Date: 20100201
  Receipt Date: 20100201
  Transmission Date: 20100710
  Serious: Yes (Other)
  Sender: FDA-Public Use
  Company Number: None

PATIENT
  Sex: Female
  Weight: 73.4827 kg

DRUGS (1)
  1. TOPIRAMATE [Suspect]
     Indication: COMPLICATED MIGRAINE
     Dosage: 50 MG BID PO
     Route: 048
     Dates: start: 20090627, end: 20090920

REACTIONS (8)
  - APHASIA [None]
  - ASTHENIA [None]
  - MENTAL IMPAIRMENT [None]
  - NECK PAIN [None]
  - PAIN IN EXTREMITY [None]
  - PRODUCT SUBSTITUTION ISSUE [None]
  - SOMNOLENCE [None]
  - SPEECH DISORDER [None]
